FAERS Safety Report 25252268 (Version 2)
Quarter: 2025Q2

REPORT INFORMATION
  Report Type: Spontaneous
  Country: US (occurrence: US)
  Receive Date: 20250429
  Receipt Date: 20250514
  Transmission Date: 20250717
  Serious: Yes (Hospitalization)
  Sender: GENERICUS
  Company Number: US-GENERICUS, INC.-2025GNR00002

PATIENT
  Sex: Male

DRUGS (14)
  1. TOBRAMYCIN [Suspect]
     Active Substance: TOBRAMYCIN
     Indication: Cystic fibrosis
     Dosage: 300 MG, 2X/DAY INTO THE LUNGS VIA NEBULIZER EVERY OTHER MONTH
     Dates: start: 20220524
  2. TOBRAMYCIN [Suspect]
     Active Substance: TOBRAMYCIN
     Indication: Lung disorder
  3. ALBUTEROL AER HFA [Concomitant]
  4. ALBUTEROL SULFATE [Concomitant]
     Active Substance: ALBUTEROL SULFATE
  5. ALTERRA [Concomitant]
  6. CAYSTON [Concomitant]
     Active Substance: AZTREONAM
  7. D3 50 [Concomitant]
  8. MVW COMPLETE FORMULATION SOFTGELS [Concomitant]
  9. PULMOZYME [Concomitant]
     Active Substance: DORNASE ALFA
  10. PULMOZYME [Concomitant]
     Active Substance: DORNASE ALFA
  11. SODIUM CHLORIDE [Concomitant]
     Active Substance: SODIUM CHLORIDE
  12. ZENPEP [Concomitant]
     Active Substance: PANCRELIPASE AMYLASE\PANCRELIPASE LIPASE\PANCRELIPASE PROTEASE
  13. TRIKAFTA [Concomitant]
     Active Substance: ELEXACAFTOR\IVACAFTOR\TEZACAFTOR
  14. ALTERA NEBULIZER (PARI) [Concomitant]

REACTIONS (4)
  - Brain oedema [Unknown]
  - Aneurysm [Unknown]
  - Sleep disorder [Unknown]
  - Performance status decreased [Unknown]

NARRATIVE: CASE EVENT DATE: 20250101
